FAERS Safety Report 18881523 (Version 1)
Quarter: 2021Q1

REPORT INFORMATION
  Report Type: Report from Study
  Country: DE (occurrence: DE)
  Receive Date: 20210212
  Receipt Date: 20210212
  Transmission Date: 20210420
  Serious: Yes (Other)
  Sender: FDA-Public Use
  Company Number: DE-SUN PHARMACEUTICAL INDUSTRIES LTD-2021R1-279310

PATIENT
  Sex: Female

DRUGS (5)
  1. IODIDE [Concomitant]
     Active Substance: IODINE
     Indication: THYROID DISORDER
     Dosage: UNK
     Route: 065
  2. NICOTINE. [Concomitant]
     Active Substance: NICOTINE
     Indication: TOBACCO USER
     Dosage: UNK
     Route: 065
  3. PARACETAMOL [Suspect]
     Active Substance: ACETAMINOPHEN
     Indication: MIGRAINE
     Dosage: UNK
     Route: 065
  4. LEVOTHYROXINE. [Concomitant]
     Active Substance: LEVOTHYROXINE
     Indication: THYROID DISORDER
     Dosage: UNK
     Route: 065
  5. INSULIN [Concomitant]
     Active Substance: INSULIN NOS
     Indication: GESTATIONAL DIABETES
     Dosage: UNK
     Route: 065

REACTIONS (3)
  - Oligohydramnios [Unknown]
  - Exposure during pregnancy [Unknown]
  - Live birth [Unknown]
